FAERS Safety Report 9740890 (Version 2)
Quarter: 2013Q4

REPORT INFORMATION
  Report Type: Spontaneous
  Country: US (occurrence: US)
  Receive Date: 20131209
  Receipt Date: 20131231
  Transmission Date: 20140711
  Serious: No
  Sender: FDA-Public Use
  Company Number: US-BIOGENIDEC-2013BI093087

PATIENT
  Age: 37 Year
  Sex: Female
  Weight: 92 kg

DRUGS (15)
  1. TECFIDERA [Suspect]
     Indication: MULTIPLE SCLEROSIS
     Route: 048
     Dates: start: 201308
  2. TECFIDERA [Suspect]
     Indication: MULTIPLE SCLEROSIS
     Route: 048
     Dates: start: 20130912, end: 20131001
  3. GABAPENTIN [Concomitant]
  4. OMEPRAZOLE [Concomitant]
  5. BIOTIN [Concomitant]
  6. FAMOTIDINE [Concomitant]
  7. METHYLPREDNISOLONE [Concomitant]
  8. BACLOFEN [Concomitant]
  9. CYMBALTA [Concomitant]
  10. AMITRIPTYLINE [Concomitant]
  11. WELCHOL [Concomitant]
  12. HYDROCORTISONE [Concomitant]
  13. CARAFATE [Concomitant]
  14. POTASSIUM CHLORIDE [Concomitant]
  15. MAGNESIUM OXIDE [Concomitant]

REACTIONS (5)
  - Hypersensitivity [Recovered/Resolved]
  - Urticaria [Recovered/Resolved]
  - Drug intolerance [Unknown]
  - Flushing [Recovered/Resolved]
  - Pruritus [Not Recovered/Not Resolved]
